FAERS Safety Report 6071952-1 (Version None)
Quarter: 2009Q1

REPORT INFORMATION
  Report Type: 
  Country: None (occurrence: None)
  Receive Date: 20090205
  Receipt Date: 20090205
  Transmission Date: 20090719
  Serious: Yes (Hospitalization)
  Sender: FDA-Public Use
  Company Number: None

PATIENT
  Age: 3 Month
  Sex: Female
  Weight: 6.36 kg

DRUGS (3)
  1. SYNAGIS [Suspect]
     Indication: PREMATURE BABY
     Dosage: 15 MG/KG 1 X MONTH IM ONE IM DOSE
     Route: 030
     Dates: start: 20081121, end: 20081121
  2. SYNAGIS [Suspect]
     Indication: PREMATURE BABY
     Dosage: 15 MG/KG 1 X MONTH IM ONE IM DOSE
     Route: 030
     Dates: start: 20081221, end: 20081221
  3. SYNAGIS [Suspect]

REACTIONS (1)
  - RESPIRATORY SYNCYTIAL VIRUS TEST POSITIVE [None]
